FAERS Safety Report 4964345-9 (Version None)
Quarter: 2006Q1

REPORT INFORMATION
  Report Type: 
  Country: None (occurrence: None)
  Receive Date: 20060331
  Receipt Date: 20060317
  Transmission Date: 20060701
  Serious: Yes (Other)
  Sender: FDA-Public Use
  Company Number: US200603005085

PATIENT
  Age: 78 Year
  Sex: Female

DRUGS (6)
  1. CYMBALTA [Suspect]
     Indication: NEURALGIA
     Dosage: SEE IMAGE
     Route: 065
  2. ATENOLOL [Concomitant]
  3. EZETIMIBE (EZETIMIBE) [Concomitant]
  4. SIMVASTATIN [Concomitant]
  5. TRAZODONE HCL [Concomitant]
  6. FAMVIR [Concomitant]

REACTIONS (10)
  - ABNORMAL DREAMS [None]
  - ANXIETY [None]
  - EXTRASYSTOLES [None]
  - FATIGUE [None]
  - FEELING ABNORMAL [None]
  - HERPES ZOSTER [None]
  - NERVOUSNESS [None]
  - PAIN [None]
  - PALPITATIONS [None]
  - THYROID DISORDER [None]
